FAERS Safety Report 19012692 (Version 4)
Quarter: 2021Q2

REPORT INFORMATION
  Report Type: Other
  Country: IT (occurrence: IT)
  Receive Date: 20210315
  Receipt Date: 20210504
  Transmission Date: 20210717
  Serious: Yes (Other)
  Sender: FDA-Public Use
  Company Number: IT-ROCHE-2786535

PATIENT

DRUGS (2)
  1. IDELALISIB [Suspect]
     Active Substance: IDELALISIB
     Indication: LYMPHOCYTIC LEUKAEMIA
     Route: 065
  2. RITUXIMAB. [Suspect]
     Active Substance: RITUXIMAB
     Indication: LYMPHOCYTIC LEUKAEMIA
     Route: 065

REACTIONS (20)
  - Anaemia [Unknown]
  - Pneumonia [Unknown]
  - Transaminases increased [Unknown]
  - Colitis [Unknown]
  - Thrombocytopenia [Unknown]
  - Cough [Unknown]
  - Erythema [Unknown]
  - Dyspnoea [Unknown]
  - Respiratory failure [Unknown]
  - Diarrhoea [Unknown]
  - Rash [Unknown]
  - Sepsis [Unknown]
  - Gastritis [Unknown]
  - Infection [Unknown]
  - Bronchitis [Unknown]
  - Cytomegalovirus infection [Unknown]
  - Sinusitis [Unknown]
  - Neutropenia [Unknown]
  - Hepatitis acute [Unknown]
  - Infusion related reaction [Unknown]
